FAERS Safety Report 12573538 (Version 1)
Quarter: 2016Q3

REPORT INFORMATION
  Report Type: Spontaneous
  Country: US (occurrence: None)
  Receive Date: 20160719
  Receipt Date: 20160719
  Transmission Date: 20161109
  Serious: Yes (Other)
  Sender: FDA-Public Use
  Company Number: None

PATIENT
  Age: 30 Year
  Sex: Female

DRUGS (1)
  1. CONTRAVE [Suspect]
     Active Substance: BUPROPION HYDROCHLORIDE\NALTREXONE HYDROCHLORIDE
     Indication: WEIGHT DECREASED
     Dosage: 8-90 DAILY PO
     Route: 048
     Dates: start: 20160616, end: 20160622

REACTIONS (3)
  - Photophobia [None]
  - Seizure [None]
  - Impaired work ability [None]

NARRATIVE: CASE EVENT DATE: 20160622
